FAERS Safety Report 8998360 (Version 2)
Quarter: 2013Q1

REPORT INFORMATION
  Report Type: Spontaneous
  Country: US (occurrence: US)
  Receive Date: 20130105
  Receipt Date: 20130307
  Transmission Date: 20140127
  Serious: No
  Sender: FDA-Public Use
  Company Number: US-JNJFOC-20121114756

PATIENT
  Age: 36 None
  Sex: Male
  Weight: 95.26 kg

DRUGS (21)
  1. INVEGA [Suspect]
     Indication: MIGRAINE
     Route: 048
     Dates: start: 2012, end: 2012
  2. INVEGA [Suspect]
     Indication: MIGRAINE
     Route: 048
     Dates: start: 201210, end: 2012
  3. INVEGA [Suspect]
     Indication: HEADACHE
     Route: 048
     Dates: start: 2012, end: 2012
  4. INVEGA [Suspect]
     Indication: HEADACHE
     Route: 048
     Dates: start: 201210, end: 2012
  5. INVEGA [Suspect]
     Indication: SUICIDAL IDEATION
     Route: 048
     Dates: start: 201210, end: 2012
  6. INVEGA [Suspect]
     Indication: SUICIDAL IDEATION
     Route: 048
     Dates: start: 2012, end: 2012
  7. INVEGA [Suspect]
     Indication: PSYCHOTIC DISORDER
     Route: 048
     Dates: start: 201210, end: 2012
  8. INVEGA [Suspect]
     Indication: PSYCHOTIC DISORDER
     Route: 048
     Dates: start: 2012, end: 2012
  9. INVEGA [Suspect]
     Indication: ENCEPHALOPATHY
     Route: 048
     Dates: start: 201210, end: 2012
  10. INVEGA [Suspect]
     Indication: ENCEPHALOPATHY
     Route: 048
     Dates: start: 2012, end: 2012
  11. INVEGA SUSTENNA [Suspect]
     Indication: MIGRAINE
     Route: 030
     Dates: start: 20121121, end: 20121121
  12. INVEGA SUSTENNA [Suspect]
     Indication: MIGRAINE
     Route: 030
     Dates: start: 201211, end: 201211
  13. INVEGA SUSTENNA [Suspect]
     Indication: HEADACHE
     Route: 030
     Dates: start: 201211, end: 201211
  14. INVEGA SUSTENNA [Suspect]
     Indication: HEADACHE
     Route: 030
     Dates: start: 20121121, end: 20121121
  15. INVEGA SUSTENNA [Suspect]
     Indication: SUICIDAL IDEATION
     Route: 030
     Dates: start: 201211, end: 201211
  16. INVEGA SUSTENNA [Suspect]
     Indication: SUICIDAL IDEATION
     Route: 030
     Dates: start: 20121121, end: 20121121
  17. INVEGA SUSTENNA [Suspect]
     Indication: PSYCHOTIC DISORDER
     Route: 030
     Dates: start: 201211, end: 201211
  18. INVEGA SUSTENNA [Suspect]
     Indication: PSYCHOTIC DISORDER
     Route: 030
     Dates: start: 20121121, end: 20121121
  19. INVEGA SUSTENNA [Suspect]
     Indication: ENCEPHALOPATHY
     Route: 030
     Dates: start: 20121121, end: 20121121
  20. INVEGA SUSTENNA [Suspect]
     Indication: ENCEPHALOPATHY
     Route: 030
     Dates: start: 201211, end: 201211
  21. DEPAKOTE [Suspect]
     Indication: PRODUCT USED FOR UNKNOWN INDICATION
     Route: 065

REACTIONS (13)
  - Chest pain [Not Recovered/Not Resolved]
  - Tachycardia [Not Recovered/Not Resolved]
  - Weight increased [Not Recovered/Not Resolved]
  - Palpitations [Not Recovered/Not Resolved]
  - Haematochezia [Unknown]
  - Skin burning sensation [Not Recovered/Not Resolved]
  - Euphoric mood [Not Recovered/Not Resolved]
  - Treatment noncompliance [Recovered/Resolved]
  - Medication error [Recovered/Resolved]
  - Tremor [Not Recovered/Not Resolved]
  - Muscle spasms [Not Recovered/Not Resolved]
  - Chills [Not Recovered/Not Resolved]
  - Drug intolerance [Recovered/Resolved]
